FAERS Safety Report 14758881 (Version 2)
Quarter: 2018Q4

REPORT INFORMATION
  Report Type: Spontaneous
  Country: GB (occurrence: GB)
  Receive Date: 20180413
  Receipt Date: 20181023
  Transmission Date: 20190204
  Serious: Yes (Other)
  Sender: FDA-Public Use
  Company Number: GB-GLAXOSMITHKLINE-GB2018058111

PATIENT

DRUGS (3)
  1. LAMIVUDINE. [Suspect]
     Active Substance: LAMIVUDINE
     Indication: PERINATAL HIV INFECTION
     Dosage: UNK
     Route: 065
  2. EFAVIRENZ. [Suspect]
     Active Substance: EFAVIRENZ
     Indication: PERINATAL HIV INFECTION
     Dosage: UNK
     Route: 065
  3. ZIDOVUDINE. [Suspect]
     Active Substance: ZIDOVUDINE
     Indication: PERINATAL HIV INFECTION
     Dosage: UNK
     Route: 065

REACTIONS (11)
  - Sleep disorder [Unknown]
  - Mood altered [Unknown]
  - Virologic failure [Unknown]
  - Disturbance in attention [Unknown]
  - Psychotic disorder [Recovered/Resolved]
  - Enuresis [Unknown]
  - Stevens-Johnson syndrome [Recovered/Resolved]
  - Gynaecomastia [Unknown]
  - Hypercholesterolaemia [Unknown]
  - Headache [Unknown]
  - Fatigue [Unknown]
